FAERS Safety Report 7740882-9 (Version None)
Quarter: 2011Q3

REPORT INFORMATION
  Report Type: 
  Country: None (occurrence: None)
  Receive Date: 20110909
  Receipt Date: 20110722
  Transmission Date: 20111222
  Serious: Yes (Other)
  Sender: FDA-Public Use
  Company Number: PHHY2011US57517

PATIENT
  Sex: Female

DRUGS (7)
  1. CALCIUM CARBONATE [Concomitant]
     Dosage: 500 MG 1X DAY
  2. LISINOPRIL [Suspect]
     Indication: BLOOD PRESSURE INCREASED
     Dosage: 40 MG, UNK
  3. CELEBREX [Suspect]
     Indication: OSTEITIS DEFORMANS
     Dosage: UNK UKN, UNK
  4. METOPROLOL TARTRATE [Suspect]
     Indication: BLOOD PRESSURE INCREASED
     Dosage: 50 MG, UNK
  5. METOPROLOL TARTRATE [Suspect]
     Dosage: 100 MG, BID
  6. LISINOPRIL [Suspect]
     Dosage: 100 MG 1X DAY
  7. RECLAST [Suspect]
     Indication: OSTEITIS DEFORMANS
     Dosage: 5 MG/100 ML 1XYR
     Route: 042
     Dates: start: 20110621

REACTIONS (5)
  - OCULAR HYPERAEMIA [None]
  - RASH [None]
  - RENAL DISORDER [None]
  - URINARY TRACT INFECTION [None]
  - BLOOD PRESSURE INCREASED [None]
